APPROVED DRUG PRODUCT: ZOFRAN
Active Ingredient: ONDANSETRON HYDROCHLORIDE
Strength: EQ 4MG BASE/5ML **Federal Register determination that product was not discontinued or withdrawn for safety or effectiveness reasons**
Dosage Form/Route: SOLUTION;ORAL
Application: N020605 | Product #001
Applicant: SANDOZ INC
Approved: Jan 24, 1997 | RLD: Yes | RS: No | Type: DISCN